FAERS Safety Report 7308220-3 (Version None)
Quarter: 2011Q1

REPORT INFORMATION
  Report Type: 
  Country: None (occurrence: None)
  Receive Date: 20110211
  Receipt Date: 20110110
  Transmission Date: 20110831
  Serious: Yes (Other)
  Sender: FDA-Public Use
  Company Number: 2011SP001785

PATIENT
  Sex: Female

DRUGS (1)
  1. PUREGON (FOLLITROPIN BETA /01348901/) [Suspect]
     Indication: PRODUCT USED FOR UNKNOWN INDICATION

REACTIONS (2)
  - HYPERTENSION [None]
  - FLUID RETENTION [None]
